FAERS Safety Report 22123521 (Version 1)
Quarter: 2023Q1

REPORT INFORMATION
  Report Type: Spontaneous
  Country: US (occurrence: US)
  Receive Date: 20230322
  Receipt Date: 20230322
  Transmission Date: 20230418
  Serious: Yes (Other)
  Sender: FDA-Public Use
  Company Number: US-GLAXOSMITHKLINE-USCH2023011904

PATIENT

DRUGS (2)
  1. ADVIL MIGRAINE [Suspect]
     Active Substance: IBUPROFEN
     Indication: Migraine
     Dosage: 2 DF
     Dates: start: 20230314, end: 20230314
  2. ADVIL MIGRAINE [Suspect]
     Active Substance: IBUPROFEN
     Indication: Headache

REACTIONS (2)
  - Hallucination [Recovered/Resolved]
  - Product use in unapproved indication [Unknown]

NARRATIVE: CASE EVENT DATE: 20230314
